FAERS Safety Report 24137714 (Version 1)
Quarter: 2024Q3

REPORT INFORMATION
  Report Type: Spontaneous
  Country: US (occurrence: None)
  Receive Date: 20240724
  Receipt Date: 20240724
  Transmission Date: 20241016
  Serious: Yes (Hospitalization)
  Sender: Public
  Company Number: None

PATIENT
  Sex: Female

DRUGS (6)
  1. EVEROLIMUS [Suspect]
     Active Substance: EVEROLIMUS
     Indication: Tuberous sclerosis complex
     Dosage: FREQ: TAKE 1 TABLET (10 MG) BY MOUTH ONCE DAILY
     Route: 048
     Dates: start: 20211228
  2. DULOXETINE [Concomitant]
     Active Substance: DULOXETINE
  3. LORAZEPAM [Concomitant]
     Active Substance: LORAZEPAM
  4. RISPERDAL [Concomitant]
     Active Substance: RISPERIDONE
  5. TRAZODONE [Concomitant]
     Active Substance: TRAZODONE HYDROCHLORIDE
  6. VITAMIN D3 [Concomitant]
     Active Substance: CHOLECALCIFEROL
     Dosage: OTHER QUANTITY : 1000UNIT ;?

REACTIONS (2)
  - Therapy interrupted [None]
  - Dyspnoea [None]
